FAERS Safety Report 11221651 (Version 4)
Quarter: 2015Q3

REPORT INFORMATION
  Report Type: Spontaneous
  Country: IE (occurrence: IE)
  Receive Date: 20150626
  Receipt Date: 20150709
  Transmission Date: 20151125
  Serious: Yes (Hospitalization, Other)
  Sender: FDA-Public Use
  Company Number: IE-BAYER-2015-365313

PATIENT
  Age: 34 Year
  Sex: Female

DRUGS (1)
  1. JAYDESS [Suspect]
     Active Substance: LEVONORGESTREL
     Indication: CONTRACEPTION
     Dosage: 14 MCG/24HR, CONT
     Route: 015
     Dates: start: 20140619

REACTIONS (12)
  - Genital haemorrhage [None]
  - Abdominal pain lower [None]
  - Abdominal pain [None]
  - Urinary tract infection [None]
  - Uterine haemorrhage [None]
  - Pelvic fluid collection [None]
  - Discomfort [None]
  - Abdominal distension [None]
  - Ectopic pregnancy with contraceptive device [None]
  - Blood urine present [None]
  - Drug ineffective [None]
  - White blood cells urine positive [None]

NARRATIVE: CASE EVENT DATE: 2014
